FAERS Safety Report 22214375 (Version 1)
Quarter: 2023Q2

REPORT INFORMATION
  Report Type: Spontaneous
  Country: CN (occurrence: CN)
  Receive Date: 20230414
  Receipt Date: 20230414
  Transmission Date: 20230721
  Serious: Yes (Other)
  Sender: FDA-Public Use
  Company Number: CN-FreseniusKabi-FK202304614

PATIENT
  Age: 19 Year
  Sex: Female
  Weight: 52.50 kg

DRUGS (4)
  1. OMEGAVEN [Suspect]
     Active Substance: FISH OIL
     Indication: Symptomatic treatment
     Route: 041
     Dates: start: 20200423, end: 20200423
  2. EGG PHOSPHOLIPIDS\GLYCERIN\SOYBEAN OIL [Suspect]
     Active Substance: EGG PHOSPHOLIPIDS\GLYCERIN\SOYBEAN OIL
     Indication: Symptomatic treatment
     Route: 041
     Dates: start: 20200423, end: 20200423
  3. AMINO ACIDS, SOURCE UNSPECIFIED [Suspect]
     Active Substance: AMINO ACIDS, SOURCE UNSPECIFIED
     Indication: Symptomatic treatment
     Route: 041
     Dates: start: 20200423, end: 20200423
  4. LEVOFLOXACIN MESYLATE [Suspect]
     Active Substance: LEVOFLOXACIN MESYLATE
     Indication: Symptomatic treatment
     Route: 041
     Dates: start: 20200423, end: 20200423

REACTIONS (5)
  - Eyelid oedema [Recovered/Resolved]
  - Laryngeal oedema [Recovered/Resolved]
  - Dyspnoea [Recovering/Resolving]
  - Rash [Recovered/Resolved]
  - Anaphylactoid reaction [Recovered/Resolved]

NARRATIVE: CASE EVENT DATE: 20200423
